FAERS Safety Report 6450888-8 (Version None)
Quarter: 2009Q4

REPORT INFORMATION
  Report Type: 
  Country: None (occurrence: None)
  Receive Date: 20091123
  Receipt Date: 20091110
  Transmission Date: 20100525
  Serious: Yes (Death)
  Sender: FDA-Public Use
  Company Number: JP-PFIZER INC-2009283743

PATIENT
  Age: 71 Year
  Sex: Male
  Weight: 81.5 kg

DRUGS (15)
  1. SILDENAFIL CITRATE [Suspect]
     Indication: PULMONARY HYPERTENSION
     Dosage: 20 MG, 3X/DAY
     Route: 048
     Dates: start: 20080606
  2. SILDENAFIL CITRATE [Suspect]
     Indication: INTERSTITIAL LUNG DISEASE
  3. DORNER [Concomitant]
     Indication: PULMONARY HYPERTENSION
     Route: 048
     Dates: start: 20090707
  4. MEVALOTIN [Concomitant]
     Route: 048
  5. PARIET [Concomitant]
     Route: 048
     Dates: start: 20080709
  6. SUCRALFATE [Concomitant]
     Route: 048
  7. ALESION [Concomitant]
     Route: 048
  8. RESPLEN [Concomitant]
     Route: 048
  9. ALLOPURINOL [Concomitant]
     Route: 048
  10. CODEINE PHOSPHATE [Concomitant]
     Route: 048
  11. IPD [Concomitant]
     Route: 048
  12. MOHRUS [Concomitant]
     Route: 062
  13. PIRFENIDONE [Concomitant]
     Route: 048
     Dates: start: 20090120
  14. NU LOTAN [Concomitant]
     Route: 048
  15. AMLODIPINE [Concomitant]
     Route: 048

REACTIONS (1)
  - PULMONARY HYPERTENSION [None]
